FAERS Safety Report 6678631-8 (Version None)
Quarter: 2010Q2

REPORT INFORMATION
  Report Type: 
  Country: None (occurrence: None)
  Receive Date: 20100413
  Receipt Date: 20100402
  Transmission Date: 20101027
  Serious: Yes (Hospitalization)
  Sender: FDA-Public Use
  Company Number: US-JNJFOC-20100401125

PATIENT
  Sex: Male
  Weight: 30.84 kg

DRUGS (3)
  1. REMICADE [Suspect]
     Indication: DRUG USE FOR UNKNOWN INDICATION
     Route: 042
  2. HUMIRA [Suspect]
     Indication: CROHN'S DISEASE
  3. BUDESONIDE [Concomitant]
     Indication: CROHN'S DISEASE

REACTIONS (3)
  - COLONOSCOPY ABNORMAL [None]
  - DIARRHOEA [None]
  - HOSPITALISATION [None]
